FAERS Safety Report 7068087-8 (Version None)
Quarter: 2010Q4

REPORT INFORMATION
  Report Type: 
  Country: None (occurrence: None)
  Receive Date: 20101028
  Receipt Date: 20101014
  Transmission Date: 20110411
  Serious: Yes (Other)
  Sender: FDA-Public Use
  Company Number: PHHY2010US68779

PATIENT
  Sex: Female
  Weight: 76.2 kg

DRUGS (17)
  1. FEMARA [Suspect]
     Indication: BREAST CANCER
     Dosage: 1 DF, 2.5 MG TABLET
     Route: 048
     Dates: start: 20100914
  2. FEMARA [Suspect]
     Dosage: UNK
     Route: 048
     Dates: start: 20070101
  3. GLIMEPIRIDE [Concomitant]
     Dosage: 1 DF, QD
     Route: 048
  4. ZOLOFT [Concomitant]
     Dosage: 1 DF, QD
     Route: 048
  5. CALTRATE 600 + VITAMIN D [Concomitant]
     Dosage: 1 DF, QD
     Route: 048
  6. ASCORBIC ACID [Concomitant]
     Dosage: UNK
     Route: 048
  7. VITAMIN D [Concomitant]
     Dosage: 1000 UNIT CAPSULE
     Route: 048
  8. FLAXSEED OIL [Concomitant]
     Dosage: 1 DF, QD
     Route: 048
  9. FISH OIL [Concomitant]
     Dosage: UNK
     Route: 048
  10. COUMADIN [Concomitant]
     Route: 048
  11. SYNTHROID [Concomitant]
     Dosage: UNK
     Route: 048
  12. TRIAMTERENE AND HYDROCHLOROTHIAZID [Concomitant]
     Dosage: 1 DF, QD
     Route: 048
  13. K-DUR [Concomitant]
     Dosage: 2 DF, QD
     Route: 048
  14. ENALAPRIL MALEATE [Concomitant]
     Dosage: 1 DF, QD
     Route: 048
  15. ATENOLOL [Concomitant]
     Dosage: 1 DF, QD
     Route: 048
  16. ALPRAZOLAM [Concomitant]
     Dosage: 0.25 MG, QD
     Route: 048
  17. VITAMINS [Concomitant]
     Route: 048

REACTIONS (13)
  - ARTHRITIS [None]
  - BACK PAIN [None]
  - BALANCE DISORDER [None]
  - CONTUSION [None]
  - FATIGUE [None]
  - FEELING ABNORMAL [None]
  - GAIT DISTURBANCE [None]
  - HYPOAESTHESIA [None]
  - MUSCULAR WEAKNESS [None]
  - OEDEMA PERIPHERAL [None]
  - PAIN IN EXTREMITY [None]
  - PALPITATIONS [None]
  - SEASONAL ALLERGY [None]
